FAERS Safety Report 17125410 (Version 1)
Quarter: 2019Q4

REPORT INFORMATION
  Report Type: Report from Study
  Country: DE (occurrence: DE)
  Receive Date: 20191207
  Receipt Date: 20191207
  Transmission Date: 20200122
  Serious: Yes (Death, Congenital Anomaly)
  Sender: FDA-Public Use
  Company Number: DE-ACCORD-163792

PATIENT

DRUGS (2)
  1. LEVETIRACETAM. [Suspect]
     Active Substance: LEVETIRACETAM
     Route: 064
  2. CARBAMAZEPINE. [Concomitant]
     Active Substance: CARBAMAZEPINE
     Route: 064

REACTIONS (2)
  - Trisomy 18 [Fatal]
  - Foetal exposure during pregnancy [Unknown]
